FAERS Safety Report 7967462 (Version 3)
Quarter: 2013Q4

REPORT INFORMATION
  Report Type: Spontaneous
  Country: US (occurrence: US)
  Receive Date: 20110531
  Receipt Date: 20131024
  Transmission Date: 20140711
  Serious: Yes (Hospitalization, Other)
  Sender: FDA-Public Use
  Company Number: US-ASTRAZENECA-2011SE31436

PATIENT
  Age: 79 Year
  Sex: Female
  Weight: 77.1 kg

DRUGS (29)
  1. NEXIUM [Suspect]
     Indication: GASTRIC DISORDER
     Route: 048
     Dates: start: 2003
  2. NEXIUM [Suspect]
     Indication: GASTRIC DISORDER
     Route: 048
     Dates: start: 2007
  3. CRESTOR [Suspect]
     Indication: BLOOD CHOLESTEROL ABNORMAL
     Route: 048
  4. LISINOPRIL [Suspect]
     Indication: BLOOD PRESSURE ABNORMAL
     Route: 048
  5. AVANDIA [Concomitant]
  6. METFORMIN [Concomitant]
     Indication: DIABETES MELLITUS
  7. METFORMIN [Concomitant]
     Indication: DIABETES MELLITUS
  8. COREG [Concomitant]
     Indication: CARDIAC DISORDER
  9. PLAVIX [Concomitant]
  10. ISOSORBIDE [Concomitant]
     Indication: CARDIAC DISORDER
     Route: 048
  11. DIOVAN [Concomitant]
  12. LASIX [Concomitant]
     Indication: BLOOD PRESSURE ABNORMAL
     Route: 048
  13. LASIX [Concomitant]
     Indication: BLOOD PRESSURE ABNORMAL
     Route: 048
  14. VYTORIN [Concomitant]
     Dosage: 10/40 DAILY
  15. IMIPRAMINE [Concomitant]
     Indication: NEUROPATHY PERIPHERAL
  16. IMIPRAMINE [Concomitant]
     Indication: NEUROPATHY PERIPHERAL
     Route: 048
  17. TRICOR [Concomitant]
  18. DARVOCET-N [Concomitant]
     Dosage: AS REQUIRED
  19. ACTOS [Concomitant]
     Route: 048
  20. FISH OIL [Concomitant]
     Indication: NUTRITIONAL SUPPLEMENTATION
     Route: 048
  21. FISH OIL [Concomitant]
     Indication: NUTRITIONAL SUPPLEMENTATION
     Route: 048
  22. KAYEXALATE [Concomitant]
     Route: 048
  23. TRADJENTA [Concomitant]
     Indication: DIABETES MELLITUS
     Route: 048
  24. CARVEDOL [Concomitant]
     Indication: CARDIAC DISORDER
     Route: 048
  25. VITAMIN D [Concomitant]
     Indication: VITAMIN SUPPLEMENTATION
     Route: 048
  26. BABY ASPIRIN [Concomitant]
     Route: 048
  27. LORAZEPAM [Concomitant]
  28. LORAZEPAM [Concomitant]
     Route: 048
  29. HYDROCODONE [Concomitant]
     Indication: PAIN
     Dosage: 5-500 PRN
     Route: 048

REACTIONS (36)
  - Cardiac disorder [Unknown]
  - Sick sinus syndrome [Unknown]
  - Femur fracture [Unknown]
  - Joint injury [Unknown]
  - Coronary artery disease [Unknown]
  - Cardiac failure congestive [Unknown]
  - Syncope [Unknown]
  - Lower limb fracture [Recovered/Resolved]
  - Ankle fracture [Recovered/Resolved]
  - Type 2 diabetes mellitus [Unknown]
  - Arthritis [Unknown]
  - Post procedural complication [Unknown]
  - Fall [Unknown]
  - Chest pain [Unknown]
  - Dyspnoea [Unknown]
  - Hypercholesterolaemia [Unknown]
  - Gastrooesophageal reflux disease [Unknown]
  - Syncope [Unknown]
  - Musculoskeletal chest pain [Unknown]
  - Cough [Unknown]
  - Dyslipidaemia [Unknown]
  - Osteoarthritis [Unknown]
  - Hyperkalaemia [Unknown]
  - Malaise [Unknown]
  - Bronchitis [Unknown]
  - Myalgia [Unknown]
  - Bone pain [Unknown]
  - Asthenia [Unknown]
  - Angina pectoris [Unknown]
  - Nausea [Unknown]
  - Memory impairment [Unknown]
  - Hypertension [Unknown]
  - Stress [Unknown]
  - Renal impairment [Unknown]
  - Off label use [Unknown]
  - Drug dose omission [Unknown]
